FAERS Safety Report 12526110 (Version 1)
Quarter: 2016Q3

REPORT INFORMATION
  Report Type: Spontaneous
  Country: US (occurrence: US)
  Receive Date: 20160705
  Receipt Date: 20160705
  Transmission Date: 20161109
  Serious: No
  Sender: FDA-Public Use
  Company Number: US-PFIZER INC-2016292952

PATIENT
  Age: 76 Year
  Sex: Female
  Weight: 92 kg

DRUGS (1)
  1. NITROSTAT [Suspect]
     Active Substance: NITROGLYCERIN
     Dosage: UNK
     Route: 060

REACTIONS (2)
  - Headache [Unknown]
  - Drug ineffective [Unknown]
